FAERS Safety Report 7956052-5 (Version None)
Quarter: 2011Q4

REPORT INFORMATION
  Report Type: 
  Country: None (occurrence: None)
  Receive Date: 20111205
  Receipt Date: 20111130
  Transmission Date: 20120403
  Serious: No
  Sender: FDA-Public Use
  Company Number: US-PFIZER INC-2011222288

PATIENT
  Sex: Male

DRUGS (2)
  1. ADVIL ALLERGY SINUS [Suspect]
     Indication: HYPERSENSITIVITY
     Dosage: 200/30 MG, AS NEEDED
     Route: 048
     Dates: start: 20110919
  2. ADVIL ALLERGY SINUS [Suspect]
     Dosage: 200/30 MG

REACTIONS (4)
  - FEELING ABNORMAL [None]
  - SOMNOLENCE [None]
  - DRUG INEFFECTIVE [None]
  - FATIGUE [None]
